FAERS Safety Report 5736144-1 (Version None)
Quarter: 2008Q2

REPORT INFORMATION
  Report Type: 
  Country: None (occurrence: None)
  Receive Date: 20080513
  Receipt Date: 20080512
  Transmission Date: 20081010
  Serious: Yes (Hospitalization)
  Sender: FDA-Public Use
  Company Number: A0723806A

PATIENT
  Age: 67 Year
  Sex: Male

DRUGS (10)
  1. ALLI [Suspect]
     Indication: WEIGHT LOSS DIET
     Route: 048
     Dates: start: 20070601
  2. PLAVIX [Concomitant]
  3. ASPIRIN [Concomitant]
  4. VITAMIN [Concomitant]
  5. METOPROLOL SUCCINATE [Concomitant]
  6. SIMVASTATIN [Concomitant]
  7. AVAPRO [Concomitant]
  8. LANTUS [Concomitant]
  9. REGULAR INSULIN [Concomitant]
  10. SPIRIVA [Concomitant]

REACTIONS (13)
  - ASTHENIA [None]
  - CARDIAC FAILURE CONGESTIVE [None]
  - CAROTID ARTERY OCCLUSION [None]
  - FEELING ABNORMAL [None]
  - FLUID RETENTION [None]
  - HYPOTENSION [None]
  - INSOMNIA [None]
  - OEDEMA PERIPHERAL [None]
  - OXYGEN SATURATION DECREASED [None]
  - PERICARDIAL EFFUSION [None]
  - PHARMACEUTICAL PRODUCT COMPLAINT [None]
  - PLEURAL EFFUSION [None]
  - RENAL IMPAIRMENT [None]
